FAERS Safety Report 5114771-2 (Version None)
Quarter: 2006Q3

REPORT INFORMATION
  Report Type: 
  Country: None (occurrence: None)
  Receive Date: 20060926
  Receipt Date: 20060918
  Transmission Date: 20061208
  Serious: Yes (Hospitalization)
  Sender: FDA-Public Use
  Company Number: AU-JNJFOC-20060904370

PATIENT
  Sex: Female

DRUGS (5)
  1. IMODIUM [Suspect]
     Indication: DIARRHOEA
     Dosage: 6 DOSES IN TOTAL, 2 CAPSULES AT 8.10AM, 1CAPSULE AT 11.15AM, 12.45AM, 1.25PM AND 7.05PM.
     Route: 048
  2. VOLTAREN [Concomitant]
     Route: 065
  3. PARIET [Concomitant]
     Route: 065
  4. ASCORBIC ACID [Concomitant]
     Route: 065
  5. GARLIC [Concomitant]
     Route: 065

REACTIONS (2)
  - HEAD INJURY [None]
  - LOSS OF CONSCIOUSNESS [None]
